FAERS Safety Report 5327903-8 (Version None)
Quarter: 2007Q2

REPORT INFORMATION
  Report Type: 
  Country: None (occurrence: None)
  Receive Date: 20070517
  Receipt Date: 20070508
  Transmission Date: 20071010
  Serious: Yes (Other)
  Sender: FDA-Public Use
  Company Number: US-PFIZER INC-2007038130

PATIENT
  Sex: Female
  Weight: 86.363 kg

DRUGS (7)
  1. DILANTIN [Suspect]
     Indication: CONVULSION
     Dosage: DAILY DOSE:200MG
  2. CIPROFLOXACIN [Suspect]
     Indication: CYSTITIS
     Dates: start: 20070401, end: 20070401
  3. ACIPHEX [Concomitant]
  4. AVALIDE [Concomitant]
  5. TOPROL-XL [Concomitant]
  6. PLAVIX [Concomitant]
  7. TROSPIUM CHLORIDE [Concomitant]

REACTIONS (6)
  - CYSTITIS [None]
  - DIZZINESS [None]
  - DRUG TOXICITY [None]
  - FATIGUE [None]
  - FEELING DRUNK [None]
  - MEMORY IMPAIRMENT [None]
